FAERS Safety Report 9448732 (Version 1)
Quarter: 2013Q3

REPORT INFORMATION
  Report Type: Spontaneous
  Country: DE (occurrence: DE)
  Receive Date: 20130808
  Receipt Date: 20130808
  Transmission Date: 20140515
  Serious: Yes (Hospitalization, Disabling, Congenital Anomaly)
  Sender: FDA-Public Use
  Company Number: DE-PFIZER INC-2013231114

PATIENT
  Sex: Male
  Weight: 3.04 kg

DRUGS (7)
  1. ZOLOFT [Suspect]
     Indication: DEPRESSION
     Dosage: 50 MG, 1X/DAY (0. - 5. GESTATIONAL WEEK)
     Route: 064
  2. ZOLOFT [Suspect]
     Dosage: 25 MG, 1X/DAY (5. - 10. GESTATIONAL WEEK)
     Route: 064
  3. ZOLOFT [Suspect]
     Dosage: 50 MG, 1X/DAY (10. - 16. GESTATIONAL WEEK)
     Route: 064
  4. ROXITHROMYCIN [Suspect]
     Indication: BRONCHITIS
     Dosage: 300 MG, 1X/DAY (4.5. - 5.4. GESTATIONAL WEEK)
     Route: 064
     Dates: start: 20070727, end: 20070802
  5. BUDES [Suspect]
     Indication: BRONCHITIS
     Dosage: 0.4 MG (400 UG), 2X/DAY (4.5. - 5.4. GESTATIONAL WEEK)
     Route: 064
     Dates: start: 20070727, end: 20070802
  6. SALBUTAMOL [Suspect]
     Indication: BRONCHITIS
     Dosage: 4.5. - 5.4. GESTATIONAL WEEK
     Route: 064
     Dates: start: 20070727, end: 20070802
  7. FOLIO [Concomitant]
     Indication: PROPHYLAXIS OF NEURAL TUBE DEFECT
     Dosage: 0.4 MG, 1X/DAY (5. - 38.3. GESTATIONAL WEEK)
     Route: 064

REACTIONS (13)
  - Maternal exposure during pregnancy [Unknown]
  - Macrocephaly [Unknown]
  - Cryptorchism [Recovered/Resolved with Sequelae]
  - Talipes [Unknown]
  - Developmental hip dysplasia [Not Recovered/Not Resolved]
  - Limb hypoplasia congenital [Not Recovered/Not Resolved]
  - Congenital multiplex arthrogryposis [Not Recovered/Not Resolved]
  - Strabismus [Recovered/Resolved with Sequelae]
  - Femur fracture [Unknown]
  - Dysmorphism [Unknown]
  - Penile adhesion [Unknown]
  - Muscular weakness [Unknown]
  - Muscle atrophy [Unknown]
